FAERS Safety Report 8224183-0 (Version None)
Quarter: 2012Q1

REPORT INFORMATION
  Report Type: 
  Country: None (occurrence: None)
  Receive Date: 20120321
  Receipt Date: 20120313
  Transmission Date: 20120608
  Serious: Yes (Other)
  Sender: FDA-Public Use
  Company Number: US-BRISTOL-MYERS SQUIBB COMPANY-16370116

PATIENT
  Age: 69 Year
  Sex: Male
  Weight: 69 kg

DRUGS (10)
  1. COREG [Concomitant]
  2. SOTALOL HCL [Concomitant]
  3. LASIX [Concomitant]
  4. COUMADIN [Suspect]
     Indication: CEREBROVASCULAR ACCIDENT
     Dates: start: 19970101
  5. LIPITOR [Suspect]
  6. POTASSIUM CHLORIDE [Concomitant]
  7. MEXILETINE HYDROCHLORIDE [Concomitant]
  8. ENALAPRIL [Concomitant]
  9. LANOXIN [Concomitant]
  10. CALCIUM CARBONATE [Concomitant]
     Indication: BONE DISORDER
     Dosage: OSCAL 500

REACTIONS (4)
  - DRUG DOSE OMISSION [None]
  - PROSTATE CANCER [None]
  - DIABETES MELLITUS [None]
  - TREATMENT NONCOMPLIANCE [None]
